FAERS Safety Report 16419218 (Version 1)
Quarter: 2019Q2

REPORT INFORMATION
  Report Type: Spontaneous
  Country: CA (occurrence: CA)
  Receive Date: 20190612
  Receipt Date: 20190612
  Transmission Date: 20190711
  Serious: Yes (Other)
  Sender: FDA-Public Use
  Company Number: CA-TEVA-2019-CA-1061518

PATIENT
  Age: 82 Year
  Sex: Male

DRUGS (2)
  1. PREDNISONE. [Suspect]
     Active Substance: PREDNISONE
     Indication: ASTHMA
     Dosage: 15 MILLIGRAM DAILY;
     Route: 065
  2. FLUTICASONE PROPIONATE/SALMETEROL XINAFOATE [Suspect]
     Active Substance: FLUTICASONE PROPIONATE\SALMETEROL XINAFOATE
     Indication: ASTHMA
     Route: 065

REACTIONS (8)
  - Eosinophilia [Recovering/Resolving]
  - Sleep apnoea syndrome [Recovering/Resolving]
  - Cardiac disorder [Recovering/Resolving]
  - Diabetes mellitus [Recovering/Resolving]
  - Loss of consciousness [Recovering/Resolving]
  - Dyspnoea at rest [Recovering/Resolving]
  - Renal failure [Recovering/Resolving]
  - Dyspnoea [Recovering/Resolving]
